FAERS Safety Report 6232617-6 (Version None)
Quarter: 2009Q2

REPORT INFORMATION
  Report Type: 
  Country: None (occurrence: None)
  Receive Date: 20090615
  Receipt Date: 20090603
  Transmission Date: 20091009
  Serious: Yes (Death, Hospitalization)
  Sender: FDA-Public Use
  Company Number: 2009-01968

PATIENT
  Age: 71 Year
  Sex: Male
  Weight: 89.3 kg

DRUGS (9)
  1. VELCADE [Suspect]
     Indication: MULTIPLE MYELOMA
     Dosage: 1.3 MG/M2, UNK, UNK
     Dates: end: 20090421
  2. THALIDOMIDE [Suspect]
     Indication: MULTIPLE MYELOMA
     Dosage: 50 MG, UNK, UNK
  3. REVLIMID [Suspect]
     Indication: MULTIPLE MYELOMA
  4. DOXIL [Suspect]
     Indication: MULTIPLE MYELOMA
  5. PREDNISONE TAB [Suspect]
     Indication: MULTIPLE MYELOMA
     Dosage: 5 MG, UNK, UNK
  6. DEXAMETHASONE TAB [Suspect]
     Indication: MULTIPLE MYELOMA
  7. GABAPENTIN [Concomitant]
  8. ALOPURINOL(ALLOPURINOL) [Concomitant]
  9. GLIPIZIDE [Concomitant]

REACTIONS (17)
  - BLOOD POTASSIUM DECREASED [None]
  - BLOOD PRESSURE SYSTOLIC INCREASED [None]
  - BONE MARROW FAILURE [None]
  - BRONCHIAL HYPERREACTIVITY [None]
  - CATHETER SITE HAEMORRHAGE [None]
  - CONFUSIONAL STATE [None]
  - DIALYSIS [None]
  - DISEASE PROGRESSION [None]
  - DYSPHAGIA [None]
  - GAIT DISTURBANCE [None]
  - HYPOGLYCAEMIA [None]
  - MUCOUS MEMBRANE DISORDER [None]
  - MULTIPLE MYELOMA [None]
  - OEDEMA PERIPHERAL [None]
  - PNEUMONIA ASPIRATION [None]
  - RENAL FAILURE [None]
  - TACHYCARDIA [None]
